FAERS Safety Report 23736764 (Version 2)
Quarter: 2024Q2

REPORT INFORMATION
  Report Type: Spontaneous
  Country: US (occurrence: US)
  Receive Date: 20240412
  Receipt Date: 20240426
  Transmission Date: 20240717
  Serious: No
  Sender: FDA-Public Use
  Company Number: US-PFIZER INC-PV202400047964

PATIENT
  Age: 69 Year
  Sex: Female
  Weight: 71.202 kg

DRUGS (1)
  1. CIPROFLOXACIN [Suspect]
     Active Substance: CIPROFLOXACIN
     Dosage: UNK

REACTIONS (2)
  - Drug hypersensitivity [Unknown]
  - Joint injury [Unknown]
